FAERS Safety Report 24085460 (Version 6)
Quarter: 2025Q3

REPORT INFORMATION
  Report Type: Spontaneous
  Country: EU (occurrence: EU)
  Receive Date: 20240712
  Receipt Date: 20250815
  Transmission Date: 20251020
  Serious: Yes (Hospitalization, Other)
  Sender: RECKITT BENCKISER
  Company Number: EU-INDIVIOR UK LIMITED-INDV-145895-2024

PATIENT

DRUGS (47)
  1. SUBUTEX [Suspect]
     Active Substance: BUPRENORPHINE HYDROCHLORIDE
     Indication: Product used for unknown indication
     Dosage: 60 MILLIGRAM, QD
     Route: 065
  2. SUBUTEX [Suspect]
     Active Substance: BUPRENORPHINE HYDROCHLORIDE
     Indication: Drug withdrawal syndrome
     Dosage: 16 MILLIGRAM, QD
     Route: 065
     Dates: start: 2017, end: 2017
  3. SUBUTEX [Suspect]
     Active Substance: BUPRENORPHINE HYDROCHLORIDE
     Dosage: UNK, QD (8MG + 4 MG 1 TABLET)
     Route: 065
     Dates: start: 2017, end: 2017
  4. SUBUTEX [Suspect]
     Active Substance: BUPRENORPHINE HYDROCHLORIDE
     Dosage: 6 MILLIGRAM, QD
     Route: 065
     Dates: start: 2017
  5. SUBUTEX [Suspect]
     Active Substance: BUPRENORPHINE HYDROCHLORIDE
     Route: 065
  6. ABILIFY [Suspect]
     Active Substance: ARIPIPRAZOLE
     Indication: Schizoaffective disorder
     Dosage: 10 MILLIGRAM, QD
     Route: 048
     Dates: start: 2006
  7. ABILIFY [Suspect]
     Active Substance: ARIPIPRAZOLE
     Route: 048
     Dates: start: 20070316, end: 20070523
  8. ABILIFY [Suspect]
     Active Substance: ARIPIPRAZOLE
     Route: 048
     Dates: start: 2009, end: 201112
  9. ABILIFY [Suspect]
     Active Substance: ARIPIPRAZOLE
     Route: 065
     Dates: start: 201206
  10. ABILIFY [Suspect]
     Active Substance: ARIPIPRAZOLE
     Route: 065
     Dates: start: 201209, end: 201610
  11. ABILIFY [Suspect]
     Active Substance: ARIPIPRAZOLE
     Dosage: 15 MILLIGRAM, QD
     Route: 048
     Dates: start: 2017, end: 20170821
  12. QUETIAPINE FUMARATE [Suspect]
     Active Substance: QUETIAPINE FUMARATE
     Indication: Product used for unknown indication
     Dosage: UNK, QD
     Route: 065
     Dates: start: 201707, end: 2017
  13. QUETIAPINE FUMARATE [Suspect]
     Active Substance: QUETIAPINE FUMARATE
     Dosage: 300 MILLIGRAM, QD
     Route: 065
     Dates: end: 2017
  14. QUETIAPINE FUMARATE [Suspect]
     Active Substance: QUETIAPINE FUMARATE
     Dosage: 100 MILLIGRAM, QD(2 DOSAGE FORM)
     Route: 065
     Dates: start: 20170821
  15. QUETIAPINE FUMARATE [Suspect]
     Active Substance: QUETIAPINE FUMARATE
     Route: 065
  16. METHADONE [Suspect]
     Active Substance: METHADONE HYDROCHLORIDE
     Indication: Drug withdrawal syndrome
     Route: 065
     Dates: start: 201703, end: 201703
  17. METHADONE [Suspect]
     Active Substance: METHADONE HYDROCHLORIDE
     Dosage: 150 MILLIGRAM, QD (50MG TID)
     Route: 065
     Dates: start: 201709, end: 2017
  18. METHADONE [Suspect]
     Active Substance: METHADONE HYDROCHLORIDE
     Route: 065
     Dates: start: 201710, end: 201712
  19. METHADONE [Suspect]
     Active Substance: METHADONE HYDROCHLORIDE
     Dosage: 40 MILLIGRAM, QD
     Route: 065
  20. ALCOHOL [Suspect]
     Active Substance: ALCOHOL
     Indication: Product used for unknown indication
     Route: 065
  21. PROZAC [Concomitant]
     Active Substance: FLUOXETINE HYDROCHLORIDE
     Indication: Product used for unknown indication
     Dosage: 20 MILLIGRAM, QD
     Route: 065
     Dates: start: 2018
  22. LITHIUM [Concomitant]
     Active Substance: LITHIUM
     Indication: Product used for unknown indication
     Dosage: 2.5 DOSAGE FORM, QD, ( 2.5 TABLETS IN THE EVENING
     Route: 065
     Dates: start: 2018
  23. AMISULPRIDE [Concomitant]
     Active Substance: AMISULPRIDE
     Indication: Affective disorder
     Dosage: 400 MILLIGRAM, QD
     Route: 065
     Dates: start: 2018
  24. AMISULPRIDE [Concomitant]
     Active Substance: AMISULPRIDE
     Route: 065
  25. ZYPREXA [Concomitant]
     Active Substance: OLANZAPINE
     Indication: Product used for unknown indication
     Dosage: 10 MILLIGRAM, QD
     Route: 065
  26. VALPROMIDE [Concomitant]
     Active Substance: VALPROMIDE
     Indication: Product used for unknown indication
     Route: 065
  27. VALPROMIDE [Concomitant]
     Active Substance: VALPROMIDE
     Route: 065
  28. DEPAKOTE [Concomitant]
     Active Substance: DIVALPROEX SODIUM
     Indication: Product used for unknown indication
     Dosage: 1500 MILLIGRAM, QD (500 MG, TID)
     Route: 065
     Dates: start: 2006
  29. DEPAKOTE [Concomitant]
     Active Substance: DIVALPROEX SODIUM
     Dosage: 1000 MILLIGRAM, QD (500 MG, BID)
     Route: 065
     Dates: start: 2007
  30. DEPAKOTE [Concomitant]
     Active Substance: DIVALPROEX SODIUM
     Dosage: 750 MILLIGRAM, QD
     Route: 065
     Dates: start: 2008
  31. DEPAKOTE [Concomitant]
     Active Substance: DIVALPROEX SODIUM
     Dosage: 1000 MILLIGRAM, QD (500 MG, BID)
     Route: 065
  32. OXAZEPAM [Concomitant]
     Active Substance: OXAZEPAM
     Indication: Product used for unknown indication
     Dosage: 75 MILLIGRAM, QD
     Route: 065
  33. OXAZEPAM [Concomitant]
     Active Substance: OXAZEPAM
     Route: 065
     Dates: start: 2011
  34. OXAZEPAM [Concomitant]
     Active Substance: OXAZEPAM
     Route: 065
  35. CYAMEMAZINE [Concomitant]
     Active Substance: CYAMEMAZINE
     Indication: Product used for unknown indication
     Dosage: 25 MILLIGRAM, QD (BEDTIME)
     Route: 065
     Dates: start: 2007
  36. MUCOMYST [Concomitant]
     Active Substance: ACETYLCYSTEINE
     Indication: Product used for unknown indication
     Dosage: UNK, TID
     Route: 065
     Dates: start: 2008
  37. AMOXICILLIN [Concomitant]
     Active Substance: AMOXICILLIN
     Indication: Product used for unknown indication
     Route: 065
     Dates: start: 2011
  38. PYRIDOXINE HYDROCHLORIDE\THIAMINE HYDROCHLORIDE [Concomitant]
     Active Substance: PYRIDOXINE HYDROCHLORIDE\THIAMINE HYDROCHLORIDE
     Indication: Product used for unknown indication
     Route: 065
     Dates: start: 2011
  39. ZOLPIDEM TARTRATE [Concomitant]
     Active Substance: ZOLPIDEM TARTRATE
     Indication: Product used for unknown indication
     Route: 065
     Dates: start: 2011
  40. NIACINAMIDE [Concomitant]
     Active Substance: NIACINAMIDE
     Indication: Product used for unknown indication
     Route: 065
     Dates: start: 2011
  41. LOXAPINE HYDROCHLORIDE [Concomitant]
     Active Substance: LOXAPINE HYDROCHLORIDE
     Indication: Product used for unknown indication
     Route: 065
  42. TRIMEPRAZINE [Concomitant]
     Active Substance: TRIMEPRAZINE
     Indication: Affective disorder
     Route: 065
  43. BACLOFEN [Concomitant]
     Active Substance: BACLOFEN
     Indication: Product used for unknown indication
     Route: 065
  44. GLYCERIN\MINERAL OIL\PETROLATUM [Concomitant]
     Active Substance: GLYCERIN\MINERAL OIL\PETROLATUM
     Indication: Product used for unknown indication
     Route: 065
     Dates: start: 20210611
  45. POLYETHYLENE GLYCOL 4000 [Concomitant]
     Active Substance: POLYETHYLENE GLYCOL 4000
     Indication: Product used for unknown indication
     Route: 065
     Dates: start: 201705
  46. ACAMPROSATE CALCIUM [Concomitant]
     Active Substance: ACAMPROSATE CALCIUM
     Indication: Product used for unknown indication
     Route: 065
     Dates: start: 201112
  47. XANAX [Concomitant]
     Active Substance: ALPRAZOLAM
     Indication: Product used for unknown indication
     Route: 065

REACTIONS (23)
  - Suicidal ideation [Recovered/Resolved]
  - Schizophrenia [Recovered/Resolved]
  - Alcohol withdrawal syndrome [Recovered/Resolved]
  - Drug withdrawal syndrome [Recovered/Resolved]
  - Drug withdrawal syndrome [Unknown]
  - Depression [Unknown]
  - Libido increased [Unknown]
  - Mania [Unknown]
  - Sexually transmitted disease [Unknown]
  - Hyperglycaemia [Recovered/Resolved]
  - Anisocytosis [Not Recovered/Not Resolved]
  - Monocytosis [Recovered/Resolved]
  - Apathy [Unknown]
  - Abulia [Unknown]
  - Ear infection [Unknown]
  - Prescribed overdose [Unknown]
  - Night sweats [Unknown]
  - Malaise [Unknown]
  - Drug dependence [Unknown]
  - Drug abuse [Recovered/Resolved]
  - Asthenia [Unknown]
  - Hypersomnia [Unknown]
  - Fatigue [Unknown]

NARRATIVE: CASE EVENT DATE: 20070316
